FAERS Safety Report 10235253 (Version 1)
Quarter: 2014Q2

REPORT INFORMATION
  Report Type: Spontaneous
  Country: US (occurrence: US)
  Receive Date: 20140613
  Receipt Date: 20140613
  Transmission Date: 20141212
  Serious: Yes (Hospitalization, Other)
  Sender: FDA-Public Use
  Company Number: US-B.I. PHARMACEUTICALS,INC./RIDGEFIELD-2014-BI-25774BP

PATIENT
  Sex: Female
  Weight: 66 kg

DRUGS (13)
  1. SPIRIVA [Suspect]
     Indication: CHRONIC OBSTRUCTIVE PULMONARY DISEASE
     Dosage: 18 MCG
     Route: 055
     Dates: start: 2009, end: 2011
  2. ALBUTEROL [Concomitant]
     Indication: CHRONIC OBSTRUCTIVE PULMONARY DISEASE
     Route: 055
  3. ALBUTEROL [Concomitant]
     Dosage: FORMULATION:INHALATION SOLUTION
     Route: 055
  4. COMBIVENT [Concomitant]
     Indication: CHRONIC OBSTRUCTIVE PULMONARY DISEASE
     Dosage: (INHALATION AEROSOL) DOSE PER APPLICATION : 20 MCG/100 MCG; DAILY DOSE: 80 MCG/400 MCG
     Route: 055
  5. VERAPAMIL [Concomitant]
     Indication: HYPERTENSION
     Dosage: 480 MG
     Route: 048
     Dates: start: 2008
  6. LOSARTAN [Concomitant]
     Indication: HYPERTENSION
     Dosage: 100 MG
     Route: 048
     Dates: start: 201402
  7. ATORVASTATIN [Concomitant]
     Dosage: 10 MG
     Route: 048
     Dates: start: 201402
  8. CLOPIDOGREL [Concomitant]
     Dosage: 75 MG
     Route: 048
     Dates: start: 201402
  9. SOMA [Concomitant]
     Indication: MUSCLE RELAXANT THERAPY
     Route: 048
     Dates: start: 2004
  10. AZELASTINE [Concomitant]
     Indication: GLAUCOMA
     Dosage: STRENGTH: 1 DROP TO EACH EYE; DAILY DOSE: 4 DROPS
     Route: 050
     Dates: start: 2010
  11. ADVAIR [Concomitant]
     Indication: CHRONIC OBSTRUCTIVE PULMONARY DISEASE
     Dosage: 2 PUF
     Route: 055
  12. PROMETHAZINE [Concomitant]
     Indication: VOMITING
     Route: 048
     Dates: start: 1980
  13. QUETIAPINE FUMARATE [Concomitant]
     Indication: INSOMNIA
     Dosage: 300 MG
     Route: 048

REACTIONS (3)
  - Blindness unilateral [Recovered/Resolved]
  - Carotid artery occlusion [Recovered/Resolved]
  - Arthralgia [Recovered/Resolved]
